FAERS Safety Report 7291299-5 (Version None)
Quarter: 2011Q1

REPORT INFORMATION
  Report Type: 
  Country: None (occurrence: None)
  Receive Date: 20110214
  Receipt Date: 20110209
  Transmission Date: 20110831
  Serious: Yes (Hospitalization)
  Sender: FDA-Public Use
  Company Number: A0769365A

PATIENT
  Age: 68 Year
  Sex: Female
  Weight: 83.6 kg

DRUGS (12)
  1. CHLORPHENIRAMINE MALEATE [Concomitant]
  2. REGULAR INSULIN [Concomitant]
  3. DARVOCET-N 100 [Concomitant]
  4. NORPRAMIN [Concomitant]
  5. FERROUS SULFATE TAB [Concomitant]
  6. MIRAPEX [Concomitant]
  7. METFORMIN [Concomitant]
  8. PREVACID [Concomitant]
  9. PHENERGAN [Concomitant]
  10. GLIPIZIDE [Concomitant]
  11. REGLAN [Concomitant]
  12. AVANDIA [Suspect]
     Dosage: 4MG PER DAY
     Route: 048
     Dates: start: 20000101, end: 20070401

REACTIONS (2)
  - CARDIAC FAILURE CONGESTIVE [None]
  - CARDIAC DISORDER [None]
